FAERS Safety Report 6876290-2 (Version None)
Quarter: 2010Q3

REPORT INFORMATION
  Report Type: 
  Country: None (occurrence: None)
  Receive Date: 20100727
  Receipt Date: 20100722
  Transmission Date: 20110219
  Serious: Yes (Hospitalization)
  Sender: FDA-Public Use
  Company Number: B0666632A

PATIENT
  Sex: Female

DRUGS (9)
  1. AUGMENTIN '125' [Suspect]
     Indication: PRODUCT USED FOR UNKNOWN INDICATION
     Dosage: 1G THREE TIMES PER DAY
     Route: 048
     Dates: start: 20100606, end: 20100608
  2. ZYLORIC [Suspect]
     Indication: GOUT
     Route: 048
     Dates: end: 20100609
  3. LANTUS [Suspect]
     Route: 058
     Dates: start: 20100601, end: 20100606
  4. NOVONORM [Suspect]
     Route: 048
     Dates: start: 20100601, end: 20100609
  5. INNOHEP [Suspect]
     Indication: PRODUCT USED FOR UNKNOWN INDICATION
     Dosage: .5ML PER DAY
     Route: 058
     Dates: start: 20100604, end: 20100608
  6. LERCAN [Suspect]
     Indication: PRODUCT USED FOR UNKNOWN INDICATION
     Dosage: 10MG PER DAY
     Route: 048
     Dates: end: 20100609
  7. NEXIUM [Suspect]
     Indication: PRODUCT USED FOR UNKNOWN INDICATION
     Dosage: 20MG PER DAY
     Route: 048
     Dates: end: 20100609
  8. FORLAX [Suspect]
     Indication: PRODUCT USED FOR UNKNOWN INDICATION
     Dosage: 3UNIT PER DAY
     Route: 048
     Dates: end: 20100609
  9. CIFLOX [Suspect]
     Indication: PRODUCT USED FOR UNKNOWN INDICATION
     Dosage: 250MG TWICE PER DAY
     Route: 048
     Dates: start: 20100604, end: 20100605

REACTIONS (2)
  - HYPOTENSION [None]
  - RASH ERYTHEMATOUS [None]
